FAERS Safety Report 9043515 (Version 1)
Quarter: 2013Q1

REPORT INFORMATION
  Report Type: Report from Study
  Country: US (occurrence: US)
  Receive Date: 20130129
  Receipt Date: 20130129
  Transmission Date: 20140127
  Serious: No
  Sender: FDA-Public Use
  Company Number: US-ABBOTT-12P-163-0914556-00

PATIENT
  Age: 17 Year
  Sex: Female

DRUGS (5)
  1. HUMIRA 40 MG/0.8 ML PEN [Suspect]
     Indication: CROHN^S DISEASE
     Dates: start: 201006
  2. ZOFRAN [Concomitant]
     Indication: PRODUCT USED FOR UNKNOWN INDICATION
     Dosage: AS REQUIRED (USES OCCASIONALLY)
  3. BENTYL [Concomitant]
     Indication: PRODUCT USED FOR UNKNOWN INDICATION
     Dosage: AS NEEDED (HARDLY EVER)
  4. IMITREX [Concomitant]
     Indication: MIGRAINE
  5. IRON [Concomitant]
     Indication: MINERAL SUPPLEMENTATION
     Dosage: DAILY

REACTIONS (4)
  - Bronchitis [Recovering/Resolving]
  - Pyrexia [Recovering/Resolving]
  - Cough [Not Recovered/Not Resolved]
  - Lethargy [Recovering/Resolving]
